FAERS Safety Report 7536914-3 (Version None)
Quarter: 2011Q2

REPORT INFORMATION
  Report Type: 
  Country: None (occurrence: None)
  Receive Date: 20110609
  Receipt Date: 20110530
  Transmission Date: 20111010
  Serious: Yes (Other)
  Sender: FDA-Public Use
  Company Number: US-RB-025940-11

PATIENT
  Sex: Female

DRUGS (1)
  1. MUCINEX [Suspect]
     Route: 048

REACTIONS (3)
  - APHONIA [None]
  - BLOOD PRESSURE INCREASED [None]
  - PALPITATIONS [None]
